FAERS Safety Report 19504943 (Version 2)
Quarter: 2021Q4

REPORT INFORMATION
  Report Type: Report from Study
  Country: US (occurrence: US)
  Receive Date: 20210708
  Receipt Date: 20211007
  Transmission Date: 20220303
  Serious: Yes (Hospitalization)
  Sender: FDA-Public Use
  Company Number: US-UCBSA-2021031612

PATIENT
  Age: 71 Year
  Sex: Male

DRUGS (1)
  1. CERTOLIZUMAB PEGOL [Suspect]
     Active Substance: CERTOLIZUMAB PEGOL
     Indication: Rheumatoid arthritis
     Dosage: 400 MILLIGRAM, EV 4 WEEKS
     Dates: start: 20210324

REACTIONS (3)
  - Localised infection [Unknown]
  - Squamous cell carcinoma [Unknown]
  - Cancer surgery [Not Recovered/Not Resolved]

NARRATIVE: CASE EVENT DATE: 20210924
